FAERS Safety Report 7562680-1 (Version None)
Quarter: 2011Q2

REPORT INFORMATION
  Report Type: 
  Country: None (occurrence: None)
  Receive Date: 20110622
  Receipt Date: 20110614
  Transmission Date: 20111010
  Serious: Yes (Other)
  Sender: FDA-Public Use
  Company Number: GB-BRISTOL-MYERS SQUIBB COMPANY-15845860

PATIENT
  Age: 69 Year

DRUGS (5)
  1. METFORMIN HCL [Suspect]
     Indication: DIABETES MELLITUS
     Route: 048
  2. BYETTA [Suspect]
     Dosage: 20MCG
  3. ATORVASTATIN [Suspect]
     Indication: BLOOD CHOLESTEROL INCREASED
     Route: 048
  4. GLICLAZIDE [Suspect]
     Indication: DIABETES MELLITUS
     Route: 048
  5. SILDENAFIL CITRATE [Concomitant]

REACTIONS (2)
  - ERYTHEMA [None]
  - SKIN REACTION [None]
